FAERS Safety Report 16899371 (Version 1)
Quarter: 2019Q4

REPORT INFORMATION
  Report Type: Spontaneous
  Country: US (occurrence: US)
  Receive Date: 20191009
  Receipt Date: 20191009
  Transmission Date: 20200122
  Serious: Yes (Hospitalization)
  Sender: FDA-Public Use
  Company Number: US-ROCHE-2424505

PATIENT
  Age: 57 Year
  Sex: Female

DRUGS (4)
  1. DELTASONE [Concomitant]
     Active Substance: PREDNISONE
     Route: 065
  2. ACTEMRA [Suspect]
     Active Substance: TOCILIZUMAB
     Indication: RHEUMATOID ARTHRITIS
     Route: 042
     Dates: start: 20140117, end: 20161018
  3. ARAVA [Concomitant]
     Active Substance: LEFLUNOMIDE
     Route: 048
  4. ACTEMRA [Suspect]
     Active Substance: TOCILIZUMAB
     Route: 042
     Dates: start: 20161116

REACTIONS (3)
  - Cerebrovascular accident [Unknown]
  - Pain [Unknown]
  - Fatigue [Unknown]

NARRATIVE: CASE EVENT DATE: 20160328
